FAERS Safety Report 14804667 (Version 1)
Quarter: 2018Q2

REPORT INFORMATION
  Report Type: Spontaneous
  Country: US (occurrence: US)
  Receive Date: 20180425
  Receipt Date: 20180425
  Transmission Date: 20180711
  Serious: No
  Sender: FDA-Public Use
  Company Number: US-BAYER-2018-078388

PATIENT
  Sex: Female

DRUGS (3)
  1. MIRALAX [Suspect]
     Active Substance: POLYETHYLENE GLYCOL 3350
     Indication: GASTROINTESTINAL DISORDER
     Dosage: UNK
     Route: 065
     Dates: start: 20180415
  2. MIRALAX [Suspect]
     Active Substance: POLYETHYLENE GLYCOL 3350
     Indication: CONSTIPATION
  3. PHILLIPS COLON HEALTH PROBIOTICS WITH METABOLISM SUPPORT [Suspect]
     Active Substance: PROBIOTICS NOS
     Route: 065

REACTIONS (2)
  - Foreign body in respiratory tract [Unknown]
  - Drug ineffective [Unknown]
